FAERS Safety Report 24625045 (Version 1)
Quarter: 2024Q4

REPORT INFORMATION
  Report Type: Spontaneous
  Country: US (occurrence: None)
  Receive Date: 20241115
  Receipt Date: 20241115
  Transmission Date: 20250115
  Serious: Yes (Disabling)
  Sender: Public
  Company Number: None

PATIENT
  Age: 28 Year
  Sex: Female
  Weight: 65.25 kg

DRUGS (1)
  1. LEVOFLOXACIN [Suspect]
     Active Substance: LEVOFLOXACIN
     Indication: Pneumonia
     Dates: start: 20240822, end: 20240907

REACTIONS (10)
  - Pain [None]
  - Panic attack [None]
  - Anxiety [None]
  - Depression [None]
  - Electric shock sensation [None]
  - Impaired work ability [None]
  - Dizziness [None]
  - Psychotic disorder [None]
  - Insomnia [None]
  - Tendonitis [None]

NARRATIVE: CASE EVENT DATE: 20240822
